FAERS Safety Report 5239164-9 (Version None)
Quarter: 2007Q1

REPORT INFORMATION
  Report Type: 
  Country: None (occurrence: None)
  Receive Date: 20061208
  Receipt Date: 20050314
  Transmission Date: 20070707
  Serious: Yes (Other)
  Sender: FDA-Public Use
  Company Number: 2005UW04037

PATIENT
  Age: 49 Year
  Sex: Male
  Weight: 90.71 kg

DRUGS (6)
  1. CRESTOR [Suspect]
     Indication: HYPERCHOLESTEROLAEMIA
     Dosage: 5 MG DAILY PO
     Route: 048
     Dates: start: 20050101
  2. CRESTOR [Suspect]
     Indication: HYPERCHOLESTEROLAEMIA
     Dosage: 10 MG DAILY PO
     Route: 048
  3. NEXIUM [Concomitant]
  4. TOPROL-XL [Concomitant]
  5. FLONASE [Concomitant]
  6. VICODIN [Concomitant]

REACTIONS (3)
  - GASTROOESOPHAGEAL SPHINCTER INSUFFICIENCY [None]
  - OESOPHAGEAL PAIN [None]
  - THROAT IRRITATION [None]
